FAERS Safety Report 18792359 (Version 7)
Quarter: 2021Q3

REPORT INFORMATION
  Report Type: Report from Study
  Country: US (occurrence: US)
  Receive Date: 20210127
  Receipt Date: 20210708
  Transmission Date: 20211014
  Serious: No
  Sender: FDA-Public Use
  Company Number: US-B.I. PHARMACEUTICALS,INC./RIDGEFIELD-2021-BI-075853

PATIENT
  Age: 86 Year
  Sex: Female

DRUGS (2)
  1. OFEV [Suspect]
     Active Substance: NINTEDANIB
     Indication: IDIOPATHIC PULMONARY FIBROSIS
     Dosage: 1 CAP BID
     Route: 048
     Dates: start: 20210107
  2. OFEV [Suspect]
     Active Substance: NINTEDANIB
     Dosage: 150MG EVERY 12 HOURS WITH FOOD
     Route: 048
     Dates: start: 20210405

REACTIONS (12)
  - Epistaxis [Not Recovered/Not Resolved]
  - Gait disturbance [Unknown]
  - Diarrhoea [Recovered/Resolved]
  - Weight decreased [Recovered/Resolved]
  - Faeces soft [Not Recovered/Not Resolved]
  - Diarrhoea [Unknown]
  - Abdominal pain upper [Recovered/Resolved]
  - Diarrhoea [Recovered/Resolved]
  - Dyspnoea [Unknown]
  - Abdominal pain [Unknown]
  - Asthenia [Recovered/Resolved]
  - Vomiting [Recovered/Resolved]

NARRATIVE: CASE EVENT DATE: 20210111
